FAERS Safety Report 6252717-4 (Version None)
Quarter: 2009Q3

REPORT INFORMATION
  Report Type: 
  Country: None (occurrence: None)
  Receive Date: 20090701
  Receipt Date: 20090625
  Transmission Date: 20100115
  Serious: Yes (Other)
  Sender: FDA-Public Use
  Company Number: GB-JNJFOC-20090608079

PATIENT
  Age: 73 Year
  Sex: Male
  Weight: 68 kg

DRUGS (9)
  1. REMICADE [Suspect]
     Indication: RHEUMATOID ARTHRITIS
     Route: 042
  2. METHOTREXATE [Concomitant]
  3. PREDNISOLONE [Concomitant]
  4. CALCICHEW [Concomitant]
  5. DIHYDROCODEINE BITARTRATE INJ [Concomitant]
  6. FOSAMAX [Concomitant]
  7. LANSOPRAZOLE [Concomitant]
  8. MELOXICAM [Concomitant]
  9. PLAQUENIL [Concomitant]

REACTIONS (1)
  - BASAL CELL CARCINOMA [None]
